FAERS Safety Report 4505413-5 (Version None)
Quarter: 2004Q4

REPORT INFORMATION
  Report Type: 
  Country: None (occurrence: None)
  Receive Date: 20041118
  Receipt Date: 20041118
  Transmission Date: 20050328
  Serious: Yes (Hospitalization)
  Sender: FDA-Public Use
  Company Number: None

PATIENT
  Age: 62 Year
  Sex: Male
  Weight: 65.7716 kg

DRUGS (2)
  1. GENTAMICIN [Suspect]
     Indication: ENDOCARDITIS BACTERIAL
     Dosage: 100MG Q12H INTRAVENOUS
     Route: 042
     Dates: start: 20041104, end: 20041108
  2. GENTAMICIN [Suspect]
     Dosage: 40 MG Q12H INTRAVENOUS
     Route: 042
     Dates: start: 20041109, end: 20041115

REACTIONS (3)
  - BLOOD CREATININE INCREASED [None]
  - BLOOD UREA INCREASED [None]
  - WEIGHT INCREASED [None]
